FAERS Safety Report 5136977-9 (Version None)
Quarter: 2006Q4

REPORT INFORMATION
  Report Type: 
  Country: None (occurrence: None)
  Receive Date: 20061030
  Receipt Date: 20061017
  Transmission Date: 20070319
  Serious: Yes (Other)
  Sender: FDA-Public Use
  Company Number: US-JNJFOC-20060806914

PATIENT
  Sex: Female
  Weight: 48.08 kg

DRUGS (6)
  1. REMICADE [Suspect]
     Route: 042
  2. REMICADE [Suspect]
     Route: 042
  3. REMICADE [Suspect]
     Indication: RHEUMATOID ARTHRITIS
     Route: 042
  4. ARIMIDEX [Concomitant]
  5. METHOTREXATE SODIUM [Concomitant]
     Dosage: 15 MG TO 17.5 MG/KG
  6. LEUCOVORIN CALCIUM [Concomitant]

REACTIONS (1)
  - BREAST CANCER [None]
